FAERS Safety Report 16408855 (Version 2)
Quarter: 2019Q3

REPORT INFORMATION
  Report Type: Spontaneous
  Country: IT (occurrence: IT)
  Receive Date: 20190610
  Receipt Date: 20190705
  Transmission Date: 20191004
  Serious: Yes (Life-Threatening)
  Sender: FDA-Public Use
  Company Number: PHHY2019IT132866

PATIENT
  Age: 46 Year
  Sex: Male

DRUGS (1)
  1. COSENTYX [Suspect]
     Active Substance: SECUKINUMAB
     Indication: PSORIASIS
     Dosage: 300 MG, QMO
     Route: 065
     Dates: start: 20181203, end: 20190510

REACTIONS (13)
  - Restlessness [Unknown]
  - Vomiting [Unknown]
  - Pain in extremity [Unknown]
  - Pallor [Unknown]
  - Hyperhidrosis [Unknown]
  - Dyspnoea [Unknown]
  - Palpitations [Unknown]
  - Musculoskeletal pain [Unknown]
  - Acute myocardial infarction [Recovered/Resolved with Sequelae]
  - Angina pectoris [Unknown]
  - Nausea [Unknown]
  - Chest discomfort [Unknown]
  - Dizziness [Unknown]

NARRATIVE: CASE EVENT DATE: 20190512
